FAERS Safety Report 16535974 (Version 1)
Quarter: 2019Q3

REPORT INFORMATION
  Report Type: Report from Study
  Country: US (occurrence: US)
  Receive Date: 20190705
  Receipt Date: 20190705
  Transmission Date: 20191004
  Serious: No
  Sender: FDA-Public Use
  Company Number: PHEH2019US027985

PATIENT
  Age: 63 Year
  Sex: Male

DRUGS (1)
  1. GLATOPA [Suspect]
     Active Substance: GLATIRAMER ACETATE
     Indication: PRODUCT USED FOR UNKNOWN INDICATION
     Dosage: 40 MG, UNK
     Route: 058

REACTIONS (4)
  - Injection site pain [Unknown]
  - Post-traumatic stress disorder [Unknown]
  - Wrong technique in device usage process [Unknown]
  - Syringe issue [Unknown]
